FAERS Safety Report 5869988-6 (Version None)
Quarter: 2008Q3

REPORT INFORMATION
  Report Type: 
  Country: None (occurrence: None)
  Receive Date: 20080904
  Receipt Date: 20080904
  Transmission Date: 20090109
  Serious: Yes (Hospitalization)
  Sender: FDA-Public Use
  Company Number: PHEH1995US02918

PATIENT
  Sex: Female
  Weight: 79.5 kg

DRUGS (10)
  1. NEORAL [Suspect]
     Route: 048
     Dates: start: 19951012
  2. PREDNISONE TAB [Concomitant]
  3. IMURAN [Concomitant]
  4. LASIX [Concomitant]
  5. VASOTEC [Concomitant]
  6. PROCARDIA [Concomitant]
  7. BACTRIM [Concomitant]
  8. NEUTRA-PHOS [Concomitant]
  9. ATIVAN [Concomitant]
  10. VICODIN [Concomitant]

REACTIONS (3)
  - CONVULSION [None]
  - LOSS OF CONSCIOUSNESS [None]
  - THINKING ABNORMAL [None]
